FAERS Safety Report 5575236-7 (Version None)
Quarter: 2007Q4

REPORT INFORMATION
  Report Type: 
  Country: None (occurrence: None)
  Receive Date: 20071221
  Receipt Date: 20071210
  Transmission Date: 20080405
  Serious: Yes (Hospitalization)
  Sender: FDA-Public Use
  Company Number: 230664J07USA

PATIENT
  Age: 59 Year
  Sex: Female

DRUGS (1)
  1. REBIF [Suspect]
     Indication: MULTIPLE SCLEROSIS
     Dosage: 44 MCG, 3 IN 1 WEEKS, SUBCUTANEOUS
     Route: 058
     Dates: start: 20070629, end: 20071008

REACTIONS (4)
  - CHOLECYSTITIS INFECTIVE [None]
  - CHOLELITHIASIS [None]
  - DIARRHOEA [None]
  - PLATELET COUNT DECREASED [None]
